FAERS Safety Report 24011110 (Version 2)
Quarter: 2024Q2

REPORT INFORMATION
  Report Type: Report from Study
  Country: US (occurrence: US)
  Receive Date: 20240625
  Receipt Date: 20240628
  Transmission Date: 20240716
  Serious: Yes (Other)
  Sender: FDA-Public Use
  Company Number: US-GILEAD-2024-0678475

PATIENT
  Age: 65 Year
  Sex: Male

DRUGS (1)
  1. BREXUCABTAGENE AUTOLEUCEL [Suspect]
     Active Substance: BREXUCABTAGENE AUTOLEUCEL
     Indication: Non-Hodgkin^s lymphoma
     Route: 042

REACTIONS (1)
  - Prostate cancer [Unknown]
